FAERS Safety Report 9898024 (Version 3)
Quarter: 2014Q2

REPORT INFORMATION
  Report Type: Report from Study
  Country: JP (occurrence: JP)
  Receive Date: 20140214
  Receipt Date: 20140408
  Transmission Date: 20141212
  Serious: Yes (Other)
  Sender: FDA-Public Use
  Company Number: JP-PFIZER INC-2014042134

PATIENT
  Sex: 0

DRUGS (1)
  1. ANCARON [Suspect]
     Dosage: UNK
     Route: 065

REACTIONS (1)
  - Lung disorder [Unknown]
